FAERS Safety Report 13516644 (Version 3)
Quarter: 2017Q2

REPORT INFORMATION
  Report Type: Spontaneous
  Country: US (occurrence: US)
  Receive Date: 20170505
  Receipt Date: 20170519
  Transmission Date: 20170830
  Serious: Yes (Death, Hospitalization, Other)
  Sender: FDA-Public Use
  Company Number: US-009507513-1705USA001369

PATIENT
  Age: 74 Year
  Sex: Female

DRUGS (3)
  1. PALBOCICLIB [Suspect]
     Active Substance: PALBOCICLIB
     Indication: BREAST CANCER METASTATIC
     Dosage: 125 MG, QD, 3 WEEKS ON, Q WEEK OFF
     Route: 048
     Dates: start: 20150629, end: 20150814
  2. PRINIVIL [Suspect]
     Active Substance: LISINOPRIL
     Indication: HYPERTENSION
     Dosage: UNK
     Route: 048
     Dates: end: 20150816
  3. HYDROCHLOROTHIAZIDE. [Suspect]
     Active Substance: HYDROCHLOROTHIAZIDE
     Indication: HYPERTENSION
     Dosage: UNK
     Route: 065
     Dates: end: 20150816

REACTIONS (19)
  - Death [Fatal]
  - Acute kidney injury [Recovered/Resolved]
  - Parathyroid tumour benign [Unknown]
  - Colon cancer [Unknown]
  - Pancytopenia [Unknown]
  - Back pain [Unknown]
  - Hypercalcaemia [Recovered/Resolved]
  - Asthma [Unknown]
  - Gout [Unknown]
  - Vomiting [Recovered/Resolved]
  - Diabetic nephropathy [Unknown]
  - Osteoporosis [Unknown]
  - Sleep apnoea syndrome [Unknown]
  - Skin cancer [Unknown]
  - Arthralgia [Unknown]
  - Weight decreased [Unknown]
  - Nausea [Recovered/Resolved]
  - Chronic kidney disease [Unknown]
  - Urinary tract infection [Unknown]

NARRATIVE: CASE EVENT DATE: 201508
